FAERS Safety Report 7042536-3 (Version None)
Quarter: 2010Q4

REPORT INFORMATION
  Report Type: 
  Country: None (occurrence: None)
  Receive Date: 20101013
  Receipt Date: 20100504
  Transmission Date: 20110411
  Serious: No
  Sender: FDA-Public Use
  Company Number: US-ASTRAZENECA-2010SE20265

PATIENT
  Sex: Female

DRUGS (1)
  1. SYMBICORT [Suspect]
     Indication: ASTHMA
     Dosage: 160 MCG
     Route: 055

REACTIONS (3)
  - COUGH [None]
  - INCREASED UPPER AIRWAY SECRETION [None]
  - NASAL CONGESTION [None]
